FAERS Safety Report 17157634 (Version 1)
Quarter: 2019Q4

REPORT INFORMATION
  Report Type: Spontaneous
  Country: US (occurrence: US)
  Receive Date: 20191213
  Receipt Date: 20191213
  Transmission Date: 20200122
  Serious: Yes (Other)
  Sender: FDA-Public Use
  Company Number: None

PATIENT
  Age: 42 Year
  Sex: Female
  Weight: 71.2 kg

DRUGS (1)
  1. FERRLECIT [Suspect]
     Active Substance: SODIUM FERRIC GLUCONATE COMPLEX
     Indication: IRON DEFICIENCY ANAEMIA

REACTIONS (6)
  - Burning sensation [None]
  - Peripheral swelling [None]
  - Dyspnoea [None]
  - Pruritus [None]
  - Chest discomfort [None]
  - Musculoskeletal stiffness [None]

NARRATIVE: CASE EVENT DATE: 20191212
